FAERS Safety Report 14055029 (Version 1)
Quarter: 2017Q4

REPORT INFORMATION
  Report Type: Spontaneous
  Country: US (occurrence: None)
  Receive Date: 20171006
  Receipt Date: 20171006
  Transmission Date: 20180321
  Serious: Yes (Hospitalization)
  Sender: FDA-Public Use
  Company Number: None

PATIENT
  Age: 5 Year
  Sex: Female
  Weight: 18.9 kg

DRUGS (3)
  1. VINCRISTINE SULFATE. [Suspect]
     Active Substance: VINCRISTINE SULFATE
     Dates: end: 20170906
  2. METHOTREXATE. [Suspect]
     Active Substance: METHOTREXATE
     Dates: end: 20170915
  3. ONCASPAR [Suspect]
     Active Substance: PEGASPARGASE
     Dates: end: 20170907

REACTIONS (9)
  - Oropharyngeal pain [None]
  - Neutropenia [None]
  - Lip swelling [None]
  - Vomiting [None]
  - Stomatitis [None]
  - Pyrexia [None]
  - Hypophagia [None]
  - Mouth ulceration [None]
  - Mucosal inflammation [None]

NARRATIVE: CASE EVENT DATE: 20170921
